FAERS Safety Report 10348156 (Version 2)
Quarter: 2014Q3

REPORT INFORMATION
  Report Type: Spontaneous
  Country: US (occurrence: None)
  Receive Date: 20140723
  Receipt Date: 20140923
  Transmission Date: 20150326
  Serious: Yes (Other)
  Sender: FDA-Public Use
  Company Number: INS201407-000132

PATIENT
  Sex: Female
  Weight: 61.23 kg

DRUGS (3)
  1. SUBSYS [Suspect]
     Active Substance: FENTANYL
     Indication: PAIN
     Dosage: 800MCG, EVERY 6 HOURS AS NEED SUBLINGUAL
     Route: 060
  2. SUBSYS [Suspect]
     Active Substance: FENTANYL
     Indication: SURGERY
     Dosage: 800MCG, EVERY 6 HOURS AS NEED SUBLINGUAL
     Route: 060
  3. SUBSYS [Suspect]
     Active Substance: FENTANYL
     Indication: BREAKTHROUGH PAIN
     Dosage: 800MCG, EVERY 6 HOURS AS NEED SUBLINGUAL
     Route: 060

REACTIONS (6)
  - Product quality issue [None]
  - Product packaging quantity issue [None]
  - Gingival operation [None]
  - Off label use [None]
  - Surgery [None]
  - Lip and/or oral cavity cancer [None]
